FAERS Safety Report 12869074 (Version 3)
Quarter: 2016Q4

REPORT INFORMATION
  Report Type: Spontaneous
  Country: US (occurrence: US)
  Receive Date: 20161021
  Receipt Date: 20161205
  Transmission Date: 20170207
  Serious: No
  Sender: FDA-Public Use
  Company Number: US-PFIZER INC-2016491361

PATIENT
  Age: 59 Year
  Sex: Male

DRUGS (12)
  1. HUMALOG [Concomitant]
     Active Substance: INSULIN LISPRO
     Dosage: UNK (SOLUTION INJECT 3.3 ML IN RESERVOIR EVERY 2 DAYS.)
     Route: 058
     Dates: start: 20140814
  2. MAXALT [Concomitant]
     Active Substance: RIZATRIPTAN BENZOATE
     Dosage: 10 MG, AS NEEDED (TAKE ONE TABLET )
     Route: 048
     Dates: start: 20131226
  3. LYRICA [Suspect]
     Active Substance: PREGABALIN
     Dosage: 50 MG, 1X/DAY (TAKE 1 CAPSULE NIGHTLY)
     Route: 048
  4. GLUCAGON EMERGENCY KIT [Concomitant]
     Active Substance: GLUCAGON
     Indication: HYPOGLYCAEMIA
     Dosage: 1 MG, AS NEEDED (EVERY 20 MINUTES )
     Route: 030
     Dates: start: 20150109
  5. DILAUDID [Concomitant]
     Active Substance: HYDROMORPHONE HYDROCHLORIDE
     Dosage: 2 MG, AS NEEDED (1 TABLET EVERY 4 HOURS )
     Route: 048
     Dates: start: 20110617
  6. LEVOTHYROXINE SODIUM. [Concomitant]
     Active Substance: LEVOTHYROXINE SODIUM
     Dosage: 137 UG, DAILY
     Route: 048
     Dates: start: 20110629
  7. REFRESH [Concomitant]
     Active Substance: UNSPECIFIED INGREDIENT
     Dosage: UNK, AS NEEDED
  8. CYCLOBENZAPRINE HCL [Concomitant]
     Active Substance: CYCLOBENZAPRINE HYDROCHLORIDE
     Dosage: 10 MG, AS NEEDED (1 TABLET AT BEDTIME)
     Route: 048
     Dates: start: 20111010
  9. ALPRAZOLAM. [Concomitant]
     Active Substance: ALPRAZOLAM
     Indication: SLEEP DISORDER THERAPY
     Dosage: 0.5 MG, AS NEEDED (1-2 TABLET )
     Route: 048
     Dates: start: 20150909
  10. PREDNISONE. [Concomitant]
     Active Substance: PREDNISONE
     Dosage: 2 MG, 2X/DAY
     Route: 048
     Dates: start: 20120619
  11. DIAZEPAM. [Concomitant]
     Active Substance: DIAZEPAM
     Dosage: 5 MG, AS NEEDED (TWICE DAILY )
     Route: 048
     Dates: start: 20110909
  12. MS CONTIN [Concomitant]
     Active Substance: MORPHINE SULFATE
     Dosage: 30 MG, UNK
     Route: 048
     Dates: start: 20150406

REACTIONS (3)
  - Burning sensation [Unknown]
  - Pain [Unknown]
  - Activities of daily living impaired [Unknown]
